FAERS Safety Report 13637280 (Version 4)
Quarter: 2018Q3

REPORT INFORMATION
  Report Type: Spontaneous
  Country: CA (occurrence: CA)
  Receive Date: 20170609
  Receipt Date: 20180906
  Transmission Date: 20181010
  Serious: Yes (Other)
  Sender: FDA-Public Use
  Company Number: CA-CELLTRION INC.-2017CA002769

PATIENT

DRUGS (8)
  1. INFLECTRA [Suspect]
     Active Substance: INFLIXIMAB-DYYB
     Indication: ANKYLOSING SPONDYLITIS
     Dosage: 400 MG, Q 0, 2, 6 WEEKS,THEN EVERY 8 WEEKS FOR 12 MONTHS
     Route: 042
     Dates: start: 20170302
  2. LANSOPRAZOLE. [Concomitant]
     Active Substance: LANSOPRAZOLE
     Dosage: 30 MG, 1X/DAY
  3. SYNTHROID [Concomitant]
     Active Substance: LEVOTHYROXINE SODIUM
     Dosage: 0.075 UNK, 1X/DAY
  4. ALESSE 28 [Suspect]
     Active Substance: ETHINYL ESTRADIOL\LEVONORGESTREL
     Indication: CONTRACEPTION
     Dosage: UNK UNK, 1 PILL DAILY
     Route: 048
  5. INFLECTRA [Suspect]
     Active Substance: INFLIXIMAB-DYYB
     Dosage: 400 MG, CYCLIC Q 0, 2, 6 WEEKS,THEN EVERY 8 WEEKS FOR 12 MONTHS
     Route: 042
  6. ENTOCORT [Concomitant]
     Active Substance: BUDESONIDE
     Dosage: 6 MG, 1X/DAY
  7. QUETIAPINE. [Concomitant]
     Active Substance: QUETIAPINE
     Dosage: 150 MG, 1X/DAY
  8. HYDROMORPHONE [Concomitant]
     Active Substance: HYDROMORPHONE
     Dosage: 1 MG, 1X/DAY

REACTIONS (8)
  - Nausea [Recovered/Resolved]
  - Swollen tongue [Recovered/Resolved]
  - Asthenia [Recovered/Resolved]
  - Somnolence [Recovered/Resolved]
  - Lip swelling [Recovered/Resolved]
  - Pharyngeal oedema [Recovered/Resolved]
  - Abdominal discomfort [Recovered/Resolved]
  - Headache [Recovered/Resolved]

NARRATIVE: CASE EVENT DATE: 20170303
